FAERS Safety Report 16103140 (Version 2)
Quarter: 2019Q2

REPORT INFORMATION
  Report Type: Spontaneous
  Country: GB (occurrence: GB)
  Receive Date: 20190322
  Receipt Date: 20190508
  Transmission Date: 20190711
  Serious: Yes (Other)
  Sender: FDA-Public Use
  Company Number: GB-AUROBINDO-AUR-APL-2019-013488

PATIENT

DRUGS (1)
  1. CO-AMOXICLAV 500 MG /125 MG FILM-COATED TABLETS [Suspect]
     Active Substance: AMOXICILLIN\CLAVULANIC ACID
     Indication: PRODUCT USED FOR UNKNOWN INDICATION
     Dosage: UNK, 500MG/125MG, EXPIRY DATE: 04/2020
     Route: 065
     Dates: start: 20190213

REACTIONS (3)
  - Product physical issue [Unknown]
  - Headache [Unknown]
  - Abdominal pain upper [Unknown]
